FAERS Safety Report 6722778-4 (Version None)
Quarter: 2010Q2

REPORT INFORMATION
  Report Type: 
  Country: None (occurrence: None)
  Receive Date: 20100511
  Receipt Date: 20100504
  Transmission Date: 20101027
  Serious: Yes (Hospitalization, Disabling)
  Sender: FDA-Public Use
  Company Number: OSCN-GE-0703S-0141

PATIENT
  Age: 70 Year
  Sex: Female

DRUGS (4)
  1. OMNISCAN [Suspect]
     Indication: GRAND MAL CONVULSION
     Dosage: 10 ML, SINGLE DOSE, I.V.
     Route: 042
     Dates: start: 20020428, end: 20020429
  2. OMNISCAN [Suspect]
     Indication: RENAL ARTERY STENOSIS
     Dosage: 50 ML, SINGLE DOSE, I.A.
     Route: 013
     Dates: start: 20020517, end: 20020517
  3. MAGNEVIST [Suspect]
     Indication: RENAL ARTERY STENOSIS
     Dosage: 10 ML, SINGLE DOSE, I.V.
     Route: 042
     Dates: start: 20020515, end: 20020515
  4. ACE INHIBITOR NOS [Concomitant]

REACTIONS (3)
  - DIALYSIS [None]
  - DRUG INTOLERANCE [None]
  - NEPHROGENIC SYSTEMIC FIBROSIS [None]
